FAERS Safety Report 19251363 (Version 6)
Quarter: 2024Q2

REPORT INFORMATION
  Report Type: Report from Study
  Country: JP (occurrence: JP)
  Receive Date: 20210513
  Receipt Date: 20240408
  Transmission Date: 20240716
  Serious: Yes (Other)
  Sender: FDA-Public Use
  Company Number: JP-ALXN-A202105323AA

PATIENT
  Age: 0 Year
  Sex: Female
  Weight: 5.4 kg

DRUGS (6)
  1. STRENSIQ [Suspect]
     Active Substance: ASFOTASE ALFA
     Indication: Hypophosphatasia
     Dosage: 2 MILLIGRAM/KILOGRAM, TIW
     Route: 058
     Dates: start: 20200127
  2. STRENSIQ [Suspect]
     Active Substance: ASFOTASE ALFA
     Dosage: 1 MILLIGRAM/KILOGRAM
     Route: 065
     Dates: start: 20200814
  3. VITAMIN B6 [Concomitant]
     Active Substance: PYRIDOXINE HYDROCHLORIDE
     Indication: Hypophosphatasia
     Dosage: 1.66 UNK, TID
     Route: 048
     Dates: end: 20201210
  4. BUDESONIDE [Concomitant]
     Active Substance: BUDESONIDE
     Indication: Hypophosphatasia
     Dosage: 0.25 MILLIGRAM, BID
     Route: 055
  5. CARBOCYSTEINE [Concomitant]
     Active Substance: CARBOCYSTEINE
     Indication: Sputum retention
     Dosage: 10 MILLIGRAM/KILOGRAM, TID
     Route: 048
     Dates: start: 20200702, end: 20210513
  6. FAMOTIDINE [Concomitant]
     Active Substance: FAMOTIDINE
     Indication: Vomiting
     Dosage: 5 MILLIGRAM, BID
     Route: 048
     Dates: start: 20200702, end: 20210913

REACTIONS (7)
  - Rickets [Not Recovered/Not Resolved]
  - Condition aggravated [Not Recovered/Not Resolved]
  - Blood alkaline phosphatase decreased [Recovered/Resolved]
  - Therapeutic response decreased [Unknown]
  - Bone deformity [Unknown]
  - Tooth development disorder [Recovered/Resolved with Sequelae]
  - Calcification metastatic [Not Recovered/Not Resolved]

NARRATIVE: CASE EVENT DATE: 20200717
